FAERS Safety Report 6606432-5 (Version None)
Quarter: 2010Q1

REPORT INFORMATION
  Report Type: 
  Country: None (occurrence: None)
  Receive Date: 20100226
  Receipt Date: 20100215
  Transmission Date: 20100710
  Serious: Yes (Hospitalization)
  Sender: FDA-Public Use
  Company Number: PHHY2010MX08966

PATIENT
  Age: 50 Year
  Sex: Female

DRUGS (2)
  1. CO-DIOVAN [Suspect]
     Indication: HYPERTENSION
     Dosage: 1 TABLET (160/12.5 MG) PER DAY
     Dates: start: 20070301
  2. TIBOLONE [Concomitant]
     Indication: MENOPAUSE
     Dosage: UNK

REACTIONS (1)
  - HYSTERECTOMY [None]
